FAERS Safety Report 9665941 (Version 6)
Quarter: 2014Q3

REPORT INFORMATION
  Report Type: Report from Study
  Country: CA (occurrence: CA)
  Receive Date: 20131104
  Receipt Date: 20140919
  Transmission Date: 20150326
  Serious: Yes (Death, Life-Threatening, Hospitalization)
  Sender: FDA-Public Use
  Company Number: CA-009507513-1311CAN000564

PATIENT
  Age: 48 Year
  Sex: Female
  Weight: 74.3 kg

DRUGS (21)
  1. LACTOBACILLUS ACIDOPHILUS [Concomitant]
     Active Substance: LACTOBACILLUS ACIDOPHILUS
     Indication: SUPPLEMENTATION THERAPY
     Dosage: UNK
     Route: 048
     Dates: start: 20130729
  2. VENTOLIN [Concomitant]
     Active Substance: ALBUTEROL SULFATE
     Indication: ASTHMA
     Dosage: 1-2 PUFF
     Route: 055
     Dates: start: 1990
  3. ZOPICLONE [Concomitant]
     Active Substance: ZOPICLONE
     Indication: INSOMNIA
     Dosage: UNK
     Route: 048
     Dates: start: 20130801
  4. DEXAMETHASONE. [Suspect]
     Active Substance: DEXAMETHASONE
     Indication: PROPHYLAXIS OF NAUSEA AND VOMITING
     Dosage: 20 MG, POST CHEMO
     Route: 048
     Dates: start: 20130730
  5. METOCLOPRAMIDE. [Suspect]
     Active Substance: METOCLOPRAMIDE
     Indication: PROPHYLAXIS OF NAUSEA AND VOMITING
     Dosage: 10 MG, PRE CHEMO
     Route: 048
  6. SYMBICORT [Concomitant]
     Active Substance: BUDESONIDE\FORMOTEROL FUMARATE DIHYDRATE
     Indication: ASTHMA
     Dosage: 2 DOSAGE FORMS DAILY
     Route: 055
     Dates: start: 2001
  7. VINTAFOLIDE [Suspect]
     Active Substance: VINTAFOLIDE
     Dosage: 2.5 MG, DAY 1, 3, 5, 15, 17 AND 19
     Route: 042
     Dates: start: 20130729, end: 20130802
  8. DEXAMETHASONE. [Concomitant]
     Active Substance: DEXAMETHASONE
     Indication: SMALL INTESTINAL OBSTRUCTION
     Dosage: 4MG DAILY
     Route: 042
     Dates: start: 20130806
  9. PEGYLATED LIPOSOMAL DOXORUBICIN [Suspect]
     Active Substance: DOXORUBICIN
     Indication: OVARIAN CANCER
     Dosage: 77 MG, ONCE EVERY 4 WEEKS
     Route: 042
     Dates: start: 20130729, end: 20131021
  10. GRANISETRON [Suspect]
     Active Substance: GRANISETRON
     Indication: PROPHYLAXIS OF NAUSEA AND VOMITING
     Dosage: 2 MG, POST CHEMO
     Route: 048
     Dates: start: 20130729
  11. EC20-TECHNETIUM99M-ETARFOLATIDE [Suspect]
     Active Substance: TECHNETIUM TC-99M ETARFOLATIDE
     Indication: SINGLE PHOTON EMISSION COMPUTERISED TOMOGRAM
     Dosage: 1.7 ML, ONCE
     Route: 042
     Dates: start: 20130717, end: 20130717
  12. UBIDECARENONE [Concomitant]
     Active Substance: UBIDECARENONE
     Indication: SUPPLEMENTATION THERAPY
     Dosage: 30 MG
     Route: 048
     Dates: start: 2010
  13. VINTAFOLIDE [Suspect]
     Active Substance: VINTAFOLIDE
     Indication: OVARIAN CANCER
     Dosage: 2.5 MG, Q3W
     Route: 042
     Dates: start: 20130729, end: 20131021
  14. RANITIDINE [Concomitant]
     Active Substance: RANITIDINE\RANITIDINE HYDROCHLORIDE
     Indication: GASTROOESOPHAGEAL REFLUX DISEASE
     Dosage: 150MG DAILY
     Route: 048
     Dates: start: 20130320
  15. RESTORALAX [Concomitant]
     Indication: BOWEL MOVEMENT IRREGULARITY
     Dosage: 17MG DAILY
     Route: 048
     Dates: start: 20130729
  16. OCTREOTIDE [Concomitant]
     Active Substance: OCTREOTIDE
     Indication: DYSPNOEA
     Dosage: 300MG DAILY
     Route: 058
     Dates: start: 20130810
  17. FOLIC ACID. [Suspect]
     Active Substance: FOLIC ACID
     Indication: SINGLE PHOTON EMISSION COMPUTERISED TOMOGRAM
     Dosage: 0.5 MG, ONCE
     Route: 042
     Dates: start: 20130717, end: 20130717
  18. LIPITAC [Concomitant]
     Indication: SUPPLEMENTATION THERAPY
     Dosage: 1000MG DAILY
     Route: 048
     Dates: start: 201307
  19. RANITIDINE [Concomitant]
     Active Substance: RANITIDINE\RANITIDINE HYDROCHLORIDE
     Indication: DYSPEPSIA
  20. ERGOCALCIFEROL. [Concomitant]
     Active Substance: ERGOCALCIFEROL
     Indication: SUPPLEMENTATION THERAPY
     Dosage: 1000MG DAILY
     Route: 048
     Dates: start: 20130729
  21. DEXAMETHASONE. [Concomitant]
     Active Substance: DEXAMETHASONE
     Indication: ABDOMINAL DISTENSION
     Dosage: 2MG DAILY
     Route: 048
     Dates: start: 20130724

REACTIONS (1)
  - Eosinophilic pneumonia [Fatal]

NARRATIVE: CASE EVENT DATE: 20131023
